FAERS Safety Report 6342840-8 (Version None)
Quarter: 2009Q3

REPORT INFORMATION
  Report Type: 
  Country: None (occurrence: None)
  Receive Date: 20090908
  Receipt Date: 20090824
  Transmission Date: 20100115
  Serious: Yes (Other)
  Sender: FDA-Public Use
  Company Number: GR-ROCHE-653017

PATIENT
  Sex: Female
  Weight: 79 kg

DRUGS (5)
  1. XENICAL [Suspect]
     Indication: METABOLIC SYNDROME
     Dosage: FORM REPORTED AS: HARD CAPS AND DOSE REPORTED AS: 2-3 CAPS.
     Route: 048
     Dates: start: 20090501, end: 20090822
  2. CRESTOR [Concomitant]
     Indication: HYPERCHOLESTEROLAEMIA
     Dosage: FORM: F.C.TABS
  3. GLUCOPHAGE [Concomitant]
     Indication: DIABETES MELLITUS
     Dosage: FORM: F.C.TABS
  4. EUTHYROX [Concomitant]
     Indication: HYPOTHYROIDISM
  5. SALOSPIR [Concomitant]
     Dosage: FORM: E/C.TABS

REACTIONS (1)
  - HAEMATOCHEZIA [None]
